FAERS Safety Report 9342885 (Version 1)
Quarter: 2013Q2

REPORT INFORMATION
  Report Type: Spontaneous
  Country: CA (occurrence: None)
  Receive Date: 20130607
  Receipt Date: 20130607
  Transmission Date: 20140414
  Serious: Yes (Hospitalization, Disabling)
  Sender: FDA-Public Use
  Company Number: TPA2013A04632

PATIENT
  Age: 64 Year
  Sex: Male

DRUGS (3)
  1. ULORIC [Suspect]
     Indication: GOUT
     Dosage: (80 MG, 1 IN 1 D)
     Dates: start: 20120219, end: 2020
  2. LIPITOR (ATORVASTATIN CALCIUM) [Concomitant]
  3. ASA (ACETYLSALICYLIC ACID) [Concomitant]

REACTIONS (4)
  - Diplopia [None]
  - Ataxia [None]
  - Cranial nerve disorder [None]
  - Miller Fisher syndrome [None]
